FAERS Safety Report 5693690-7 (Version None)
Quarter: 2008Q2

REPORT INFORMATION
  Report Type: 
  Country: None (occurrence: None)
  Receive Date: 20080403
  Receipt Date: 20080327
  Transmission Date: 20081010
  Serious: Yes (Hospitalization)
  Sender: FDA-Public Use
  Company Number: IT-BAYER-200815592GPV

PATIENT
  Age: 74 Year
  Sex: Male

DRUGS (6)
  1. ASPIRIN [Suspect]
     Indication: ANTICOAGULANT THERAPY
     Dosage: TOTAL DAILY DOSE: 100 MG  UNIT DOSE: 100 MG
     Route: 048
     Dates: start: 20080101, end: 20080323
  2. NORVASC [Concomitant]
     Indication: HYPERTENSION
     Dosage: TOTAL DAILY DOSE: 5 MG  UNIT DOSE: 5 MG
     Route: 048
     Dates: start: 20080101, end: 20080323
  3. PLAUNAC [Concomitant]
     Indication: HYPERTENSION
     Dosage: TOTAL DAILY DOSE: 10 MG  UNIT DOSE: 10 MG
     Route: 048
     Dates: start: 20080101, end: 20080323
  4. CREON [Concomitant]
     Indication: PANCREATIC INSUFFICIENCY
     Route: 048
     Dates: start: 20080101, end: 20080323
  5. MADOPAR [Concomitant]
     Indication: PARKINSON'S DISEASE
     Dosage: TOTAL DAILY DOSE: 125 MG  UNIT DOSE: 125 MG
     Route: 048
     Dates: start: 20080101, end: 20080323
  6. NIMOTOP [Concomitant]
     Indication: CARDIAC FAILURE
     Dosage: TOTAL DAILY DOSE: 30 MG
     Route: 048
     Dates: start: 20080101, end: 20080323

REACTIONS (2)
  - DUODENAL ULCER [None]
  - GASTRIC ULCER [None]
